FAERS Safety Report 7702397-3 (Version None)
Quarter: 2011Q3

REPORT INFORMATION
  Report Type: 
  Country: None (occurrence: None)
  Receive Date: 20110822
  Receipt Date: 20110810
  Transmission Date: 20111222
  Serious: Yes (Hospitalization, Other)
  Sender: FDA-Public Use
  Company Number: PHHY2011JP73403

PATIENT
  Age: 62 Year
  Sex: Female

DRUGS (5)
  1. CYCLOPHOSPHAMIDE [Suspect]
     Indication: DIFFUSE LARGE B-CELL LYMPHOMA STAGE III
     Dosage: UNK
     Dates: start: 20080601
  2. RITUXIMAB [Suspect]
     Indication: DIFFUSE LARGE B-CELL LYMPHOMA STAGE III
     Dosage: ??-JUN-2008
  3. DANAZOL [Concomitant]
  4. PREDNISOLONE [Suspect]
  5. VINCRISTINE [Suspect]
     Indication: DIFFUSE LARGE B-CELL LYMPHOMA STAGE III
     Dosage: UNK
     Dates: start: 20080601

REACTIONS (8)
  - LYMPHANGITIS [None]
  - FUNGAL SKIN INFECTION [None]
  - ULCER [None]
  - SKIN LESION [None]
  - HAEMORRHAGIC DIATHESIS [None]
  - RASH PUSTULAR [None]
  - ERYTHEMA [None]
  - IDIOPATHIC THROMBOCYTOPENIC PURPURA [None]
